FAERS Safety Report 15077449 (Version 1)
Quarter: 2018Q2

REPORT INFORMATION
  Report Type: Spontaneous
  Country: US (occurrence: US)
  Receive Date: 20180607
  Receipt Date: 20180607
  Transmission Date: 20180711
  Serious: No
  Sender: FDA-Public Use
  Company Number: None

PATIENT
  Age: 37 Year
  Sex: Female

DRUGS (1)
  1. LUPRON [Suspect]
     Active Substance: LEUPROLIDE ACETATE
     Indication: ENDOMETRIOSIS
     Route: 030
     Dates: start: 20180325

REACTIONS (5)
  - Headache [None]
  - Hot flush [None]
  - Fatigue [None]
  - Memory impairment [None]
  - Arthralgia [None]

NARRATIVE: CASE EVENT DATE: 20180422
